FAERS Safety Report 11694668 (Version 2)
Quarter: 2016Q4

REPORT INFORMATION
  Report Type: Spontaneous
  Country: US (occurrence: US)
  Receive Date: 20151103
  Receipt Date: 20161101
  Transmission Date: 20170206
  Serious: No
  Sender: FDA-Public Use
  Company Number: US-ABBVIE-15P-163-1374525-00

PATIENT
  Age: 53 Year
  Sex: Female
  Weight: 54.48 kg

DRUGS (3)
  1. ASPIRIN. [Concomitant]
     Active Substance: ASPIRIN
     Indication: PRODUCT USED FOR UNKNOWN INDICATION
     Dosage: 1-2 TABLETS PER DAY
     Route: 048
  2. BIAXIN [Suspect]
     Active Substance: CLARITHROMYCIN
     Route: 048
     Dates: start: 201502, end: 20150401
  3. BIAXIN [Suspect]
     Active Substance: CLARITHROMYCIN
     Indication: PNEUMONIA MYCOPLASMAL
     Route: 048
     Dates: start: 201411, end: 201502

REACTIONS (26)
  - Back pain [Recovering/Resolving]
  - Abdominal distension [Recovered/Resolved]
  - Tinnitus [Recovering/Resolving]
  - Muscle disorder [Recovering/Resolving]
  - Weight decreased [Unknown]
  - Movement disorder [Recovering/Resolving]
  - Periarthritis [Recovering/Resolving]
  - Vomiting [Recovered/Resolved]
  - Pneumonia mycoplasmal [Recovered/Resolved]
  - Gastrooesophageal reflux disease [Unknown]
  - Anxiety [Unknown]
  - Pain in extremity [Recovering/Resolving]
  - Obsessive-compulsive disorder [Unknown]
  - Rash [Recovered/Resolved]
  - Nausea [Recovered/Resolved]
  - Depression [Unknown]
  - Hyperhidrosis [Recovered/Resolved]
  - Oesophageal spasm [Recovering/Resolving]
  - Muscle twitching [Recovering/Resolving]
  - Musculoskeletal stiffness [Recovering/Resolving]
  - Skin burning sensation [Unknown]
  - Joint crepitation [Recovering/Resolving]
  - Dysphagia [Recovering/Resolving]
  - Dysgeusia [Recovered/Resolved]
  - Muscle spasms [Recovering/Resolving]
  - Musculoskeletal pain [Recovering/Resolving]

NARRATIVE: CASE EVENT DATE: 201411
